FAERS Safety Report 24048843 (Version 7)
Quarter: 2025Q1

REPORT INFORMATION
  Report Type: Spontaneous
  Country: US (occurrence: US)
  Receive Date: 20240704
  Receipt Date: 20250221
  Transmission Date: 20250409
  Serious: Yes (Hospitalization, Other)
  Sender: AMGEN
  Company Number: US-AMGEN-USASP2024126338

PATIENT
  Age: 39 Year
  Sex: Female

DRUGS (5)
  1. RAVICTI [Suspect]
     Active Substance: GLYCEROL PHENYLBUTYRATE
     Indication: Cystinosis
     Dosage: 3.5 MILLILITER, TID (1.1 GRAMS/ML 25ML)
     Route: 048
  2. RAVICTI [Suspect]
     Active Substance: GLYCEROL PHENYLBUTYRATE
     Indication: Urea cycle disorder
     Dosage: 3.5 MILLILITER, TID (1.1 GRAMS/ML 25ML BT)
     Route: 048
  3. RAVICTI [Suspect]
     Active Substance: GLYCEROL PHENYLBUTYRATE
     Dosage: 3.5 MILLILITER, TID (1. 1 GRAMS/M L 25M L BT)
     Route: 048
  4. RAVICTI [Suspect]
     Active Substance: GLYCEROL PHENYLBUTYRATE
     Dosage: 3.5 MILLILITER, TID, WITH MEALS
     Route: 048
  5. RAVICTI [Suspect]
     Active Substance: GLYCEROL PHENYLBUTYRATE
     Dosage: 3.5 MILLILITER, TID, WITH MEALS. TOTAL DAILY DOSE IS 10.5 ML.
     Route: 048

REACTIONS (19)
  - Colitis [Unknown]
  - Gastric infection [Unknown]
  - Bone pain [Unknown]
  - Gait disturbance [Unknown]
  - Urinary tract infection [Unknown]
  - Ammonia increased [Unknown]
  - Unevaluable event [Unknown]
  - Surgery [Unknown]
  - Gastroenteritis salmonella [Unknown]
  - Skin disorder [Unknown]
  - Rash pustular [Unknown]
  - Swelling [Unknown]
  - Limb injury [Unknown]
  - Fall [Unknown]
  - Dyspepsia [Unknown]
  - Sluggishness [Unknown]
  - Memory impairment [Not Recovered/Not Resolved]
  - Bacterial infection [Not Recovered/Not Resolved]
  - Decreased appetite [Not Recovered/Not Resolved]

NARRATIVE: CASE EVENT DATE: 20240101
